FAERS Safety Report 8904666 (Version 1)
Quarter: 2012Q4

REPORT INFORMATION
  Report Type: 
  Country: US (occurrence: US)
  Receive Date: 20121113
  Receipt Date: 20121113
  Transmission Date: 20130627
  Serious: No
  Sender: FDA-Public Use
  Company Number: US-GLAXOSMITHKLINE-A0951436A

PATIENT
  Age: 66 Year
  Sex: Male
  Weight: 94.5 kg

DRUGS (10)
  1. COREG [Suspect]
     Indication: HYPERTENSION
     Route: 065
  2. AMLODIPINE [Suspect]
     Indication: HYPERTENSION
  3. NIASPAN [Concomitant]
  4. CLOPIDOGREL [Concomitant]
  5. ROSUVASTATIN CALCIUM [Concomitant]
  6. OMEGA-3 MARINE TRIGLYCERIDES [Concomitant]
  7. UBIDECARENONE [Concomitant]
  8. COSEQUIN DS [Concomitant]
  9. PARACETAMOL [Concomitant]
  10. ERGOCALCIFEROL [Concomitant]

REACTIONS (1)
  - Hypotension [Recovered/Resolved]
